FAERS Safety Report 7303785-X (Version None)
Quarter: 2011Q1

REPORT INFORMATION
  Report Type: 
  Country: None (occurrence: None)
  Receive Date: 20110221
  Receipt Date: 20110210
  Transmission Date: 20110831
  Serious: Yes (Other)
  Sender: FDA-Public Use
  Company Number: JP-ROCHE-757350

PATIENT
  Sex: Female
  Weight: 40 kg

DRUGS (13)
  1. AVASTIN [Suspect]
     Route: 041
     Dates: start: 20100927, end: 20101125
  2. LEVOFOLINATE [Suspect]
     Dosage: DOSAGE IS UNCERTAIN.
     Route: 041
     Dates: start: 20101125, end: 20101125
  3. AVASTIN [Suspect]
     Indication: COLON CANCER RECURRENT
     Route: 041
     Dates: start: 20100422, end: 20100909
  4. FLUOROURACIL [Suspect]
     Indication: COLON CANCER RECURRENT
     Dosage: DOSAGE IS UNCERTAIN. ROUTE: INTRAVENOUS BOLUS.
     Route: 040
     Dates: start: 20100318, end: 20100423
  5. LEVOFOLINATE [Suspect]
     Dosage: DOSAGE IS UNCERTAIN.
     Route: 041
     Dates: start: 20101209, end: 20101209
  6. ISOVORIN [Concomitant]
     Dosage: DOSAGE IS UNCERTAIN.
     Route: 041
     Dates: start: 20100318, end: 20101101
  7. FLUOROURACIL [Suspect]
     Dosage: ROUTE: INTRAVENOUS DRIP
     Route: 040
     Dates: start: 20100318, end: 20101101
  8. FLUOROURACIL [Suspect]
     Dosage: DOSAGE IS UNCERTAIN.
     Route: 040
     Dates: start: 20101125, end: 20101211
  9. LEVOFOLINATE [Suspect]
     Indication: COLON CANCER RECURRENT
     Dosage: DOSAGE IS UNCERTAIN.
     Route: 041
     Dates: start: 20101108, end: 20101108
  10. KYTRIL [Concomitant]
     Route: 042
     Dates: start: 20100318, end: 20100910
  11. DECADRON [Concomitant]
     Route: 042
     Dates: start: 20100318, end: 20101210
  12. ISOVORIN [Concomitant]
     Dosage: DOSAGE IS UNCERTAIN.
     Route: 041
     Dates: start: 20101125, end: 20101210
  13. ELPLAT [Suspect]
     Indication: COLON CANCER RECURRENT
     Dosage: DOSAGE IS UNCERTAIN.
     Route: 041
     Dates: start: 20100318, end: 20101108

REACTIONS (3)
  - HYPERTENSION [None]
  - GASTRIC DISORDER [None]
  - INTERSTITIAL LUNG DISEASE [None]
